FAERS Safety Report 24981783 (Version 1)
Quarter: 2025Q1

REPORT INFORMATION
  Report Type: Spontaneous
  Country: US (occurrence: None)
  Receive Date: 20250217
  Receipt Date: 20250217
  Transmission Date: 20250409
  Serious: Yes (unspecified)
  Sender: FDA-CTU
  Company Number: None

PATIENT
  Age: 66 Year
  Sex: Male

DRUGS (1)
  1. GAMUNEX-C [Suspect]
     Active Substance: HUMAN IMMUNOGLOBULIN G
     Route: 041

REACTIONS (5)
  - Infusion related reaction [None]
  - Pruritus [None]
  - Erythema [None]
  - Urticaria [None]
  - Therapy interrupted [None]

NARRATIVE: CASE EVENT DATE: 20250212
